FAERS Safety Report 16029165 (Version 1)
Quarter: 2019Q1

REPORT INFORMATION
  Report Type: Spontaneous
  Country: US (occurrence: US)
  Receive Date: 20190304
  Receipt Date: 20190304
  Transmission Date: 20190418
  Serious: No
  Sender: FDA-Public Use
  Company Number: US-SA-2019SA055031

PATIENT

DRUGS (5)
  1. ARAVA [Suspect]
     Active Substance: LEFLUNOMIDE
     Dosage: UNK UNK, UNK
     Route: 065
     Dates: start: 201604
  2. METHOTREXATE. [Suspect]
     Active Substance: METHOTREXATE
     Dosage: UNK UNK, UNK
     Route: 065
     Dates: start: 2016
  3. SULFASALAZINE. [Suspect]
     Active Substance: SULFASALAZINE
     Dosage: UNK UNK, UNK
     Route: 065
     Dates: start: 201811
  4. HUMIRA [Suspect]
     Active Substance: ADALIMUMAB
     Dosage: UNK UNK, UNK
     Route: 058
     Dates: start: 201706
  5. PLAQUENIL [HYDROXYCHLOROQUINE PHOSPHATE] [Suspect]
     Active Substance: HYDROXYCHLOROQUINE DIPHOSPHATE
     Dosage: UNK UNK, UNK
     Route: 065
     Dates: start: 201605

REACTIONS (1)
  - Drug effect incomplete [Unknown]
